FAERS Safety Report 7693945-0 (Version None)
Quarter: 2011Q3

REPORT INFORMATION
  Report Type: 
  Country: None (occurrence: None)
  Receive Date: 20110819
  Receipt Date: 20110809
  Transmission Date: 20111222
  Serious: Yes (Hospitalization)
  Sender: FDA-Public Use
  Company Number: CA-SANOFI-AVENTIS-2011SA044341

PATIENT
  Sex: Male
  Weight: 80 kg

DRUGS (11)
  1. METFORMIN HCL [Concomitant]
  2. ASPIRIN [Concomitant]
     Route: 065
  3. DIGOXIN [Concomitant]
     Route: 065
  4. GLYBURIDE [Concomitant]
  5. THIAZIDES [Concomitant]
     Route: 065
  6. WARFARIN SODIUM [Concomitant]
     Route: 065
  7. GLUCOBAY [Concomitant]
  8. ATENOLOL [Concomitant]
     Route: 065
  9. IRBESARTAN [Concomitant]
     Route: 065
  10. PERINDOPRIL [Concomitant]
     Route: 065
  11. DRONEDARONE HCL [Suspect]
     Indication: ATRIAL FIBRILLATION
     Route: 048
     Dates: start: 20110227, end: 20110315

REACTIONS (2)
  - PNEUMONIA BACTERIAL [None]
  - CARDIAC FAILURE [None]
